FAERS Safety Report 8095179-7 (Version None)
Quarter: 2012Q1

REPORT INFORMATION
  Report Type: 
  Country: None (occurrence: None)
  Receive Date: 20120131
  Receipt Date: 20120127
  Transmission Date: 20120608
  Serious: Yes (Hospitalization)
  Sender: FDA-Public Use
  Company Number: NL-AMGEN-NLDSP2012005812

PATIENT
  Age: 73 Year
  Sex: Female
  Weight: 48 kg

DRUGS (7)
  1. DOXORUBICIN HCL [Suspect]
     Indication: DIFFUSE LARGE B-CELL LYMPHOMA
     Dosage: 77 MG, UNK
     Route: 042
     Dates: start: 20110610
  2. PREDNISONE TAB [Suspect]
     Indication: DIFFUSE LARGE B-CELL LYMPHOMA
     Dosage: 100 MG, UNK
     Route: 048
     Dates: start: 20110610
  3. VINCRISTINE [Suspect]
     Indication: DIFFUSE LARGE B-CELL LYMPHOMA
     Dosage: 2 MG, UNK
     Route: 042
     Dates: start: 20110610
  4. CYCLOPHOSPHAMIDE [Suspect]
     Indication: DIFFUSE LARGE B-CELL LYMPHOMA
     Dosage: 1155 MG, UNK
     Route: 042
     Dates: start: 20110610
  5. PERINDOPRIL ERBUMINE [Concomitant]
     Dosage: 10 MG, UNK
     Route: 048
  6. NEUPOGEN [Suspect]
     Indication: DIFFUSE LARGE B-CELL LYMPHOMA
     Dosage: 6 MG, UNK
     Route: 058
  7. RITUXIMAB [Suspect]
     Indication: DIFFUSE LARGE B-CELL LYMPHOMA
     Dosage: 577 MG, UNK
     Route: 042
     Dates: start: 20110610

REACTIONS (4)
  - PYREXIA [None]
  - STAPHYLOCOCCAL BACTERAEMIA [None]
  - SYNCOPE [None]
  - MUSCLE SPASMS [None]
